FAERS Safety Report 8368133-5 (Version None)
Quarter: 2012Q2

REPORT INFORMATION
  Report Type: 
  Country: None (occurrence: None)
  Receive Date: 20120517
  Receipt Date: 20120504
  Transmission Date: 20120825
  Serious: Yes (Other)
  Sender: FDA-Public Use
  Company Number: IT-MYLANLABS-2012S1009347

PATIENT
  Age: 47 Year
  Sex: Female

DRUGS (1)
  1. TACROLIMUS [Suspect]
     Indication: IMMUNOSUPPRESSION
     Route: 065

REACTIONS (2)
  - CALCIFICATION METASTATIC [None]
  - NEPHROCALCINOSIS [None]
